FAERS Safety Report 21486580 (Version 1)
Quarter: 2022Q4

REPORT INFORMATION
  Report Type: Report from Study
  Country: US (occurrence: US)
  Receive Date: 20221020
  Receipt Date: 20221020
  Transmission Date: 20230113
  Serious: Yes (Hospitalization, Other)
  Sender: FDA-Public Use
  Company Number: US-BoehringerIngelheim-2020-BI-017882

PATIENT
  Age: 79 Year
  Sex: Male

DRUGS (9)
  1. OFEV [Suspect]
     Active Substance: NINTEDANIB
     Indication: Idiopathic pulmonary fibrosis
     Route: 048
     Dates: start: 20200319
  2. OFEV [Suspect]
     Active Substance: NINTEDANIB
     Route: 048
  3. PREDNISONE [Suspect]
     Active Substance: PREDNISONE
     Indication: Product used for unknown indication
  4. PREDNISONE [Suspect]
     Active Substance: PREDNISONE
  5. TYLENOL [Concomitant]
     Active Substance: ACETAMINOPHEN
     Indication: Product used for unknown indication
     Route: 065
  6. FUROSEMIDE [Concomitant]
     Active Substance: FUROSEMIDE
     Indication: Product used for unknown indication
     Dosage: DECREASED
  7. VITAMIN B12 [Concomitant]
     Active Substance: CYANOCOBALAMIN
     Indication: Product used for unknown indication
  8. LOSARTAN [Concomitant]
     Active Substance: LOSARTAN
     Indication: Product used for unknown indication
     Dosage: DECREASED
  9. METOPROLOL [Concomitant]
     Active Substance: METOPROLOL
     Indication: Product used for unknown indication
     Route: 065

REACTIONS (31)
  - Viral infection [Unknown]
  - Idiopathic pulmonary fibrosis [Unknown]
  - Neoplasm malignant [Unknown]
  - Polymyalgia rheumatica [Unknown]
  - Hip surgery [Unknown]
  - Flatulence [Unknown]
  - Abdominal pain [Unknown]
  - Tremor [Recovered/Resolved]
  - Constipation [Unknown]
  - Pyrexia [Unknown]
  - Arthralgia [Unknown]
  - Myalgia [Unknown]
  - Diarrhoea [Unknown]
  - Dizziness postural [Recovered/Resolved]
  - Arthropod bite [Unknown]
  - Fatigue [Unknown]
  - Muscular weakness [Unknown]
  - Headache [Unknown]
  - Toothache [Unknown]
  - Dizziness postural [Unknown]
  - Abdominal pain upper [Unknown]
  - Pain [Recovered/Resolved]
  - Pruritus [Unknown]
  - Nausea [Unknown]
  - Photosensitivity reaction [Unknown]
  - Chest pain [Unknown]
  - Procedural pain [Unknown]
  - Renal disorder [Unknown]
  - Renal pain [Unknown]
  - Cough [Unknown]
  - Rhinorrhoea [Unknown]

NARRATIVE: CASE EVENT DATE: 20200301
